FAERS Safety Report 9191291 (Version 3)
Quarter: 2013Q2

REPORT INFORMATION
  Report Type: Report from Study
  Country: TR (occurrence: TR)
  Receive Date: 20130326
  Receipt Date: 20130625
  Transmission Date: 20140414
  Serious: Yes (Other)
  Sender: FDA-Public Use
  Company Number: TR-ROCHE-1204660

PATIENT
  Sex: 0

DRUGS (4)
  1. TRASTUZUMAB [Suspect]
     Indication: BREAST CANCER METASTATIC
     Dosage: LOADING DOSE
     Route: 042
  2. TRASTUZUMAB [Suspect]
     Dosage: ON DAY 1
     Route: 042
  3. CAPECITABINE [Suspect]
     Indication: BREAST CANCER METASTATIC
     Dosage: DAY 1- 14 EVERY 3 WEEK
     Route: 048
  4. PACLITAXEL [Suspect]
     Indication: BREAST CANCER METASTATIC
     Dosage: ON DAY 1
     Route: 042

REACTIONS (10)
  - Diarrhoea [Unknown]
  - Neutropenia [Unknown]
  - Palmar-plantar erythrodysaesthesia syndrome [Unknown]
  - Nausea [Unknown]
  - Vomiting [Unknown]
  - Fatigue [Unknown]
  - Alopecia [Unknown]
  - Neuropathy peripheral [Unknown]
  - Anaemia [Unknown]
  - Mucosal inflammation [Unknown]
